FAERS Safety Report 25146562 (Version 2)
Quarter: 2025Q2

REPORT INFORMATION
  Report Type: Spontaneous
  Country: TW (occurrence: None)
  Receive Date: 20250401
  Receipt Date: 20250407
  Transmission Date: 20250717
  Serious: Yes (Death)
  Sender: INCYTE
  Company Number: TW-002147023-NVSC2025TW053097

PATIENT

DRUGS (1)
  1. RUXOLITINIB [Suspect]
     Active Substance: RUXOLITINIB
     Indication: Product used for unknown indication

REACTIONS (1)
  - Acute myeloid leukaemia [Fatal]
